FAERS Safety Report 5982937-5 (Version None)
Quarter: 2008Q4

REPORT INFORMATION
  Report Type: 
  Country: None (occurrence: None)
  Receive Date: 20081205
  Receipt Date: 20081205
  Transmission Date: 20090506
  Serious: Yes (Life-Threatening, Hospitalization)
  Sender: FDA-Public Use
  Company Number: None

PATIENT
  Age: 91 Year
  Sex: Female
  Weight: 53.5244 kg

DRUGS (2)
  1. ALEVE [Suspect]
     Indication: ARTHRALGIA
     Dosage: 1 TABLET DAILY PO
     Route: 048
     Dates: start: 20081101, end: 20081119
  2. ALEVE [Suspect]
     Indication: PAIN IN EXTREMITY
     Dosage: 1 TABLET DAILY PO
     Route: 048
     Dates: start: 20081101, end: 20081119

REACTIONS (2)
  - HAEMORRHAGE [None]
  - PALPITATIONS [None]
